FAERS Safety Report 19463832 (Version 3)
Quarter: 2022Q1

REPORT INFORMATION
  Report Type: Spontaneous
  Country: None (occurrence: US)
  Receive Date: 20210625
  Receipt Date: 20220203
  Transmission Date: 20220423
  Serious: Yes (Other)
  Sender: FDA-Public Use
  Company Number: US-INTERNATIONAL MEDICATION SYSTEMS, LIMITED-2113141

PATIENT
  Age: 57 Year
  Sex: Male
  Weight: 92 kg

DRUGS (4)
  1. LIDOCAINE HYDROCHLORIDE [Suspect]
     Active Substance: LIDOCAINE HYDROCHLORIDE
     Indication: Local anaesthesia
     Route: 061
     Dates: start: 20210610, end: 20210610
  2. DEVICE [Suspect]
     Active Substance: DEVICE
  3. DEVICE [Suspect]
     Active Substance: DEVICE
  4. DEVICE [Suspect]
     Active Substance: DEVICE

REACTIONS (2)
  - Foreign body in gastrointestinal tract [Unknown]
  - Removal of foreign body from oesophagus [Unknown]

NARRATIVE: CASE EVENT DATE: 20210610
